FAERS Safety Report 15547934 (Version 1)
Quarter: 2018Q4

REPORT INFORMATION
  Report Type: Spontaneous
  Country: US (occurrence: US)
  Receive Date: 20181024
  Receipt Date: 20181024
  Transmission Date: 20190205
  Serious: No
  Sender: FDA-Public Use
  Company Number: US-BAYER-2018-195765

PATIENT
  Sex: Male

DRUGS (2)
  1. MAGNESIUM CITRATE. [Concomitant]
     Active Substance: MAGNESIUM CITRATE
     Dosage: UNK
     Dates: start: 20181019
  2. MIRALAX [Suspect]
     Active Substance: POLYETHYLENE GLYCOL 3350
     Indication: DIARRHOEA
     Dosage: UNK

REACTIONS (5)
  - Dysstasia [Unknown]
  - Diarrhoea [None]
  - Product use in unapproved indication [Unknown]
  - Abnormal faeces [Unknown]
  - Diarrhoea [Unknown]
